FAERS Safety Report 8264904-4 (Version None)
Quarter: 2012Q2

REPORT INFORMATION
  Report Type: 
  Country: None (occurrence: None)
  Receive Date: 20120406
  Receipt Date: 20120326
  Transmission Date: 20120825
  Serious: Yes (Death, Other)
  Sender: FDA-Public Use
  Company Number: US-SANOFI-AVENTIS-2012SA021027

PATIENT
  Sex: Female

DRUGS (5)
  1. AMBIEN [Suspect]
     Dates: start: 20080812, end: 20090101
  2. ABILIFY [Concomitant]
     Dates: start: 20090211
  3. DALMANE [Concomitant]
     Dates: start: 20090206
  4. AMBIEN [Suspect]
     Dates: start: 20090608, end: 20100101
  5. PROZAC [Concomitant]
     Dates: start: 20090204

REACTIONS (3)
  - SUICIDE ATTEMPT [None]
  - COMPLETED SUICIDE [None]
  - OVERDOSE [None]
